FAERS Safety Report 5971748-2 (Version None)
Quarter: 2008Q4

REPORT INFORMATION
  Report Type: 
  Country: None (occurrence: None)
  Receive Date: 20081125
  Receipt Date: 20081110
  Transmission Date: 20090506
  Serious: Yes (Other)
  Sender: FDA-Public Use
  Company Number: 230488J08USA

PATIENT
  Age: 30 Year
  Sex: Female
  Weight: 47.1741 kg

DRUGS (13)
  1. REBIF [Suspect]
     Indication: MULTIPLE SCLEROSIS
     Dosage: 44 MCG, 3 IN 1 WEEKS, SUBCUTANEOUS
     Route: 058
     Dates: start: 20060925
  2. WELLBUTRIN [Concomitant]
  3. SEROQUEL [Concomitant]
  4. FERROUS SULFATE TAB [Concomitant]
  5. LANTUS [Concomitant]
  6. NOVOLOG [Concomitant]
  7. ZOMIG [Concomitant]
  8. CLONIDINE [Concomitant]
  9. LASIX (FUROSEMIDE /00032601/) [Concomitant]
  10. NEURONTIN [Concomitant]
  11. REGLAN (METOCLOPRAMIDE /00041901/) [Concomitant]
  12. ZANTAC 150 [Concomitant]
  13. NORVASC [Concomitant]

REACTIONS (11)
  - BURNING SENSATION [None]
  - CERVICAL DYSPLASIA [None]
  - DYSPNOEA [None]
  - GLYCOSYLATED HAEMOGLOBIN INCREASED [None]
  - HYPERHIDROSIS [None]
  - MUSCLE DISORDER [None]
  - MYASTHENIA GRAVIS [None]
  - RETCHING [None]
  - THERAPEUTIC PRODUCT INEFFECTIVE [None]
  - THYROID MASS [None]
  - WEIGHT INCREASED [None]
